FAERS Safety Report 4725792-3 (Version None)
Quarter: 2005Q3

REPORT INFORMATION
  Report Type: 
  Country: None (occurrence: None)
  Receive Date: 20050725
  Receipt Date: 20050711
  Transmission Date: 20060218
  Serious: Yes (Other)
  Sender: FDA-Public Use
  Company Number: HQWYE237115JUL05

PATIENT
  Age: 92 Year
  Sex: Female

DRUGS (9)
  1. CORDARONE [Suspect]
     Dosage: APPROXIMATELY 7 MONTHS UNTIL WITHDRAWN
  2. METHIMAZOLE [Suspect]
     Dosage: MANY YEARS UNTIL WITHDRAWN
  3. FUROSEMIDE (FUROSEMIDE) [Concomitant]
  4. ASPIRIN [Concomitant]
  5. POTASSIUM (POTASSIUM) [Concomitant]
  6. CAPTOPRIL [Concomitant]
  7. METOCLOPRAMIDE [Concomitant]
  8. MULTIVITAMINS (ASCORBIC ACID/ERGOCALCIFEROL/FOLIC/NICOTINAMIDE/PANTHEN [Concomitant]
  9. METOPROLOL [Concomitant]

REACTIONS (11)
  - ABNORMAL DREAMS [None]
  - AMNESIA [None]
  - CONFUSIONAL STATE [None]
  - DELUSION [None]
  - DRUG INTERACTION [None]
  - HALLUCINATION, VISUAL [None]
  - HYPOTHYROIDISM [None]
  - LETHARGY [None]
  - PARANOIA [None]
  - SOMNOLENCE [None]
  - TREMOR [None]
